FAERS Safety Report 20852975 (Version 4)
Quarter: 2022Q2

REPORT INFORMATION
  Report Type: Spontaneous
  Country: CZ (occurrence: CZ)
  Receive Date: 20220520
  Receipt Date: 20220615
  Transmission Date: 20220721
  Serious: Yes (Other)
  Sender: FDA-Public Use
  Company Number: CZ-002147023-NVSC2022CZ101937

PATIENT
  Sex: Female

DRUGS (6)
  1. ARIPIPRAZOLE [Suspect]
     Active Substance: ARIPIPRAZOLE
     Indication: Schizophrenia
     Dosage: UNK
  2. RISPERIDONE [Suspect]
     Active Substance: RISPERIDONE
     Indication: Schizophrenia
     Dosage: UNK
  3. OLANZAPINE [Suspect]
     Active Substance: OLANZAPINE
     Indication: Schizophrenia
     Dosage: UNK
     Route: 048
  4. OLANZAPINE [Suspect]
     Active Substance: OLANZAPINE
     Indication: Depression
  5. PALIPERIDONE [Suspect]
     Active Substance: PALIPERIDONE
     Indication: Product used for unknown indication
     Dosage: UNK
     Route: 048
  6. PALIPERIDONE [Suspect]
     Active Substance: PALIPERIDONE
     Indication: Depression
     Dosage: UNK

REACTIONS (7)
  - Disturbance in attention [Recovered/Resolved]
  - Oculogyric crisis [Recovered/Resolved]
  - Amenorrhoea [Unknown]
  - Hypersomnia [Unknown]
  - Negative symptoms in schizophrenia [Unknown]
  - Impaired quality of life [Recovered/Resolved]
  - Extrapyramidal disorder [Recovered/Resolved]
